FAERS Safety Report 18136222 (Version 9)
Quarter: 2022Q2

REPORT INFORMATION
  Report Type: Report from Study
  Country: FR (occurrence: FR)
  Receive Date: 20200811
  Receipt Date: 20220411
  Transmission Date: 20220721
  Serious: Yes (Other)
  Sender: FDA-Public Use
  Company Number: FR-JNJFOC-20200747769

PATIENT
  Age: 58 Year
  Sex: Female
  Weight: 78 kg

DRUGS (14)
  1. SPRAVATO [Suspect]
     Active Substance: ESKETAMINE
     Indication: Depression
     Dosage: TOTAL 3 DOSES
     Dates: start: 20200421, end: 20200427
  2. SPRAVATO [Suspect]
     Active Substance: ESKETAMINE
     Dosage: TOTAL OF 5 DOSES
     Dates: start: 20200429, end: 20200515
  3. MIANSERIN HYDROCHLORIDE [Concomitant]
     Active Substance: MIANSERIN HYDROCHLORIDE
     Indication: Antidepressant therapy
     Dates: start: 20200421
  4. LITHIUM [Concomitant]
     Active Substance: LITHIUM
     Indication: Drug therapy
     Dates: start: 20171031
  5. LITHIUM [Concomitant]
     Active Substance: LITHIUM
     Dates: start: 20191129
  6. LAMOTRIGINE [Concomitant]
     Active Substance: LAMOTRIGINE
     Indication: Epilepsy
     Dates: start: 20171110
  7. LOXAPINE [Concomitant]
     Active Substance: LOXAPINE
     Indication: Psychotic disorder
     Dates: start: 20171110, end: 20180509
  8. LOXAPINE [Concomitant]
     Active Substance: LOXAPINE
     Dates: start: 20171109, end: 20190514
  9. LOXAPINE [Concomitant]
     Active Substance: LOXAPINE
     Dates: start: 20190515, end: 20190614
  10. LOXAPINE [Concomitant]
     Active Substance: LOXAPINE
     Dates: start: 20190614
  11. QUETIAPINE [Concomitant]
     Active Substance: QUETIAPINE
     Indication: Psychotic disorder
     Dates: start: 20200224
  12. DIAZEPAM [Concomitant]
     Active Substance: DIAZEPAM
     Indication: Prophylaxis
     Dates: start: 20170326
  13. DIAZEPAM [Concomitant]
     Active Substance: DIAZEPAM
     Dates: start: 20190514
  14. LORMETAZEPAM [Concomitant]
     Active Substance: LORMETAZEPAM

REACTIONS (6)
  - Paralysis [Recovered/Resolved]
  - Bladder pain [Recovered/Resolved]
  - Drug ineffective [Recovered/Resolved]
  - Patient dissatisfaction with treatment [Recovered/Resolved]
  - Off label use [Unknown]
  - Product use issue [Unknown]

NARRATIVE: CASE EVENT DATE: 20200421
